FAERS Safety Report 11185989 (Version 2)
Quarter: 2015Q3

REPORT INFORMATION
  Report Type: Spontaneous
  Country: IT (occurrence: IT)
  Receive Date: 20150612
  Receipt Date: 20150717
  Transmission Date: 20151125
  Serious: Yes (Hospitalization)
  Sender: FDA-Public Use
  Company Number: IT-009507513-1506ITA006226

PATIENT
  Age: 74 Year
  Sex: Male

DRUGS (2)
  1. SINVACOR 10 MG COMPRESSE RIVESTITE CON FILM [Suspect]
     Active Substance: SIMVASTATIN
     Indication: HYPERCHOLESTEROLAEMIA
     Dosage: 20 MG, QD
     Route: 048
     Dates: start: 20131213, end: 20141120
  2. TICLOPIDINE [Suspect]
     Active Substance: TICLOPIDINE
     Indication: ARTERIOSCLEROSIS
     Dosage: 250 MG, QD
     Route: 048
     Dates: start: 20131213, end: 20150108

REACTIONS (3)
  - Arteriosclerosis [Recovered/Resolved]
  - Hypercholesterolaemia [Recovered/Resolved]
  - No therapeutic response [Recovered/Resolved]

NARRATIVE: CASE EVENT DATE: 20141120
